FAERS Safety Report 16962618 (Version 1)
Quarter: 2019Q4

REPORT INFORMATION
  Report Type: Spontaneous
  Country: US (occurrence: US)
  Receive Date: 20191025
  Receipt Date: 20191025
  Transmission Date: 20200122
  Serious: Yes (Other)
  Sender: FDA-Public Use
  Company Number: US-MYLANLABS-2019M1099981

PATIENT
  Age: 9 Decade
  Sex: Male

DRUGS (10)
  1. CLINDAMYCIN. [Suspect]
     Active Substance: CLINDAMYCIN
     Indication: RASH PUSTULAR
     Route: 065
  2. PREDNISONE. [Suspect]
     Active Substance: PREDNISONE
     Indication: RASH PUSTULAR
     Route: 048
  3. PIMECROLIMUS. [Suspect]
     Active Substance: PIMECROLIMUS
     Indication: PHOTOSENSITIVITY REACTION
  4. CLINDAMYCIN. [Suspect]
     Active Substance: CLINDAMYCIN
     Indication: PHOTOSENSITIVITY REACTION
  5. PREDNISONE. [Suspect]
     Active Substance: PREDNISONE
     Indication: PHOTOSENSITIVITY REACTION
  6. CHLORHEXIDINE [Suspect]
     Active Substance: CHLORHEXIDINE
     Indication: RASH PUSTULAR
     Dosage: WASHES
     Route: 065
  7. IVERMECTIN. [Suspect]
     Active Substance: IVERMECTIN
     Indication: RASH PUSTULAR
     Route: 065
  8. CHLORHEXIDINE [Suspect]
     Active Substance: CHLORHEXIDINE
     Indication: PHOTOSENSITIVITY REACTION
  9. IVERMECTIN. [Suspect]
     Active Substance: IVERMECTIN
     Indication: PHOTOSENSITIVITY REACTION
  10. PIMECROLIMUS. [Suspect]
     Active Substance: PIMECROLIMUS
     Indication: RASH PUSTULAR
     Route: 065

REACTIONS (1)
  - Drug ineffective [Unknown]
